FAERS Safety Report 11116548 (Version 3)
Quarter: 2015Q3

REPORT INFORMATION
  Report Type: Spontaneous
  Country: JP (occurrence: JP)
  Receive Date: 20150515
  Receipt Date: 20150731
  Transmission Date: 20151125
  Serious: Yes (Hospitalization, Disabling, Other)
  Sender: FDA-Public Use
  Company Number: JP-PFIZER INC-2015166937

PATIENT
  Age: 89 Year
  Sex: Female
  Weight: 47 kg

DRUGS (9)
  1. SEROQUEL [Concomitant]
     Active Substance: QUETIAPINE FUMARATE
     Indication: DEMENTIA
     Dosage: UNK UNK, 1X/DAY
     Route: 048
     Dates: start: 20140704
  2. MUCOSTA [Concomitant]
     Active Substance: REBAMIPIDE
     Indication: GASTRITIS
     Dosage: UNK, 3X/DAY
     Route: 048
     Dates: start: 20140404, end: 20150205
  3. CELECOX [Suspect]
     Active Substance: CELECOXIB
     Indication: BACK PAIN
     Dosage: 100 MG, 2X/DAY
     Route: 048
     Dates: start: 20150122, end: 20150128
  4. ECARD LD [Concomitant]
     Active Substance: CANDESARTAN CILEXETIL\HYDROCHLOROTHIAZIDE
     Indication: HYPERTENSION
     Dosage: UNK UNK, 1X/DAY
     Route: 048
     Dates: start: 20130809, end: 20150131
  5. ARICEPT [Concomitant]
     Active Substance: DONEPEZIL HYDROCHLORIDE
     Indication: DEMENTIA
     Dosage: 10 MG, 1X/DAY
     Route: 048
     Dates: start: 20140404, end: 20150502
  6. ASTOMIN [Concomitant]
     Active Substance: DIMEMORFAN
     Indication: BRONCHIECTASIS
     Dosage: UNK UNK, 3X/DAY
     Route: 048
     Dates: start: 20110905, end: 20150205
  7. MIYA-BM [Concomitant]
     Active Substance: CLOSTRIDIUM BUTYRICUM SPORES STRAIN M-55
     Indication: CONSTIPATION
     Dosage: UNK, 2X/DAY
     Route: 048
     Dates: start: 20140409
  8. MAGMITT [Concomitant]
     Active Substance: MAGNESIUM OXIDE
     Indication: CONSTIPATION
     Dosage: UNK, 3X/DAY
     Route: 048
     Dates: start: 20140623
  9. MUCOSOLVAN [Concomitant]
     Active Substance: AMBROXOL\CLENBUTEROL
     Indication: BRONCHIECTASIS
     Dosage: UNK UNK, 3X/DAY
     Route: 048
     Dates: start: 20130809

REACTIONS (4)
  - Logorrhoea [Recovered/Resolved]
  - Rhabdomyolysis [Recovered/Resolved with Sequelae]
  - Vomiting [Recovered/Resolved]
  - Hallucination [Unknown]

NARRATIVE: CASE EVENT DATE: 20150127
